FAERS Safety Report 25773854 (Version 1)
Quarter: 2025Q3

REPORT INFORMATION
  Report Type: Spontaneous
  Country: US (occurrence: None)
  Receive Date: 20250907
  Receipt Date: 20250907
  Transmission Date: 20251021
  Serious: Yes (Other)
  Sender: FDA-CTU
  Company Number: None

PATIENT
  Age: 48 Year
  Sex: Female
  Weight: 51.75 kg

DRUGS (2)
  1. BELBUCA [Suspect]
     Active Substance: BUPRENORPHINE HYDROCHLORIDE
  2. XTAMPZA [Concomitant]
     Active Substance: OXYCODONE

REACTIONS (2)
  - Device physical property issue [None]
  - Dental caries [None]

NARRATIVE: CASE EVENT DATE: 20240525
